FAERS Safety Report 21553564 (Version 1)
Quarter: 2022Q4

REPORT INFORMATION
  Report Type: Report from Study
  Country: IN (occurrence: IN)
  Receive Date: 20221104
  Receipt Date: 20221104
  Transmission Date: 20230113
  Serious: Yes (Hospitalization, Other)
  Sender: FDA-Public Use
  Company Number: IN-002147023-NVSC2022IN246291

PATIENT
  Age: 31 Year
  Sex: Male
  Weight: 72 kg

DRUGS (1)
  1. SIMULECT [Suspect]
     Active Substance: BASILIXIMAB
     Indication: Renal transplant
     Dosage: (DOSE 20)
     Route: 042
     Dates: start: 20220925, end: 20220925

REACTIONS (1)
  - Transplant rejection [Recovered/Resolved]

NARRATIVE: CASE EVENT DATE: 20220925
